FAERS Safety Report 13899551 (Version 1)
Quarter: 2017Q3

REPORT INFORMATION
  Report Type: Spontaneous
  Country: US (occurrence: US)
  Receive Date: 20170823
  Receipt Date: 20170823
  Transmission Date: 20171127
  Serious: No
  Sender: FDA-Public Use
  Company Number: US-JAZZ-2017-US-008563

PATIENT
  Sex: Male

DRUGS (13)
  1. XYREM [Suspect]
     Active Substance: SODIUM OXYBATE
     Indication: SOMNOLENCE
     Dosage: 2.25 G, BID
     Route: 048
     Dates: start: 201109, end: 201110
  2. XANAX [Concomitant]
     Active Substance: ALPRAZOLAM
  3. XYREM [Suspect]
     Active Substance: SODIUM OXYBATE
     Dosage: DOSE ADJUSTMENT
     Route: 048
     Dates: start: 201110, end: 201208
  4. COENZYME Q10 [Concomitant]
     Active Substance: UBIDECARENONE
  5. LEXAPRO [Concomitant]
     Active Substance: ESCITALOPRAM OXALATE
  6. XYREM [Suspect]
     Active Substance: SODIUM OXYBATE
     Dosage: 4 G, BID
     Route: 048
     Dates: start: 2012, end: 201311
  7. ASHWAGANDHA                        /01660201/ [Concomitant]
     Active Substance: HERBALS
  8. XYREM [Suspect]
     Active Substance: SODIUM OXYBATE
     Dosage: 3 G, BID
     Route: 048
     Dates: start: 201502, end: 201507
  9. VITAMIN C [Concomitant]
     Active Substance: ASCORBIC ACID
  10. RHODIOLA ROSEA [Concomitant]
     Active Substance: HERBALS
  11. VALIUM [Concomitant]
     Active Substance: DIAZEPAM
  12. TESTOSTERONE. [Concomitant]
     Active Substance: TESTOSTERONE
  13. TAURINE [Concomitant]
     Active Substance: TAURINE

REACTIONS (1)
  - Off label use [Unknown]
